FAERS Safety Report 5281242-2 (Version None)
Quarter: 2007Q1

REPORT INFORMATION
  Report Type: 
  Country: None (occurrence: None)
  Receive Date: 20070326
  Receipt Date: 20070313
  Transmission Date: 20070707
  Serious: Yes (Hospitalization)
  Sender: FDA-Public Use
  Company Number: 2007SP005080

PATIENT
  Age: 45 Year
  Sex: Male

DRUGS (5)
  1. PEG-INTRON [Suspect]
     Indication: HEPATITIS C
     Dosage: 150 MCG;QW
     Dates: start: 20060317
  2. REBETOL [Suspect]
     Indication: HEPATITIS C
     Dosage: 1200 MG; QD
     Dates: start: 20060317
  3. ZYPREXA (CON.) [Concomitant]
  4. ALPRAZOLAM (CON.) [Concomitant]
  5. FLUOXETINE (CON.) [Concomitant]

REACTIONS (4)
  - ALCOHOLISM [None]
  - CONDITION AGGRAVATED [None]
  - IMPULSIVE BEHAVIOUR [None]
  - IRRITABILITY [None]
